FAERS Safety Report 10874575 (Version 1)
Quarter: 2015Q1

REPORT INFORMATION
  Report Type: Spontaneous
  Country: JP (occurrence: JP)
  Receive Date: 20150227
  Receipt Date: 20150227
  Transmission Date: 20150721
  Serious: Yes (Other)
  Sender: FDA-Public Use
  Company Number: JP-MYLANLABS-2015M1005095

PATIENT

DRUGS (4)
  1. PREDNISOLONE TABLETS 1^HOEI^ [Suspect]
     Active Substance: PREDNISOLONE
     Indication: OTITIS MEDIA ACUTE
     Dosage: 30-60MG/DAY
     Route: 048
  2. REUMATREX [Suspect]
     Active Substance: METHOTREXATE
     Indication: OTITIS MEDIA
     Route: 048
  3. PREDNISOLONE TABLETS 1^HOEI^ [Suspect]
     Active Substance: PREDNISOLONE
     Indication: DEAFNESS NEUROSENSORY
     Dosage: TAPERED FROM 1MG/KG
     Route: 048
  4. PROTON PUMP INHIBITORS [Suspect]
     Active Substance: UNSPECIFIED INGREDIENT
     Indication: PRODUCT USED FOR UNKNOWN INDICATION
     Route: 065

REACTIONS (7)
  - Compression fracture [Unknown]
  - Diverticular perforation [Unknown]
  - Hypercholesterolaemia [Recovering/Resolving]
  - Osteonecrosis [Unknown]
  - Lumbar vertebral fracture [Unknown]
  - Diabetes mellitus [Recovering/Resolving]
  - Cushingoid [Unknown]
